FAERS Safety Report 8819488 (Version 1)
Quarter: 2012Q4

REPORT INFORMATION
  Report Type: 
  Country: US (occurrence: US)
  Receive Date: 20120930
  Receipt Date: 20120930
  Transmission Date: 20130627
  Serious: No
  Sender: FDA-Public Use
  Company Number: US-ASTRAZENECA-2012SE72146

PATIENT
  Age: 53 Year
  Sex: Male

DRUGS (3)
  1. NEXIUM [Suspect]
     Route: 048
  2. ASPIRIN [Concomitant]
  3. INSULIN [Concomitant]

REACTIONS (7)
  - Gastrooesophageal reflux disease [Unknown]
  - Oesophagitis [Unknown]
  - Diabetes mellitus [Unknown]
  - Dyspepsia [Unknown]
  - Oesophageal mucosa erythema [Unknown]
  - Gastric mucosal lesion [Unknown]
  - Drug ineffective [Unknown]
